FAERS Safety Report 10470396 (Version 1)
Quarter: 2014Q3

REPORT INFORMATION
  Report Type: Spontaneous
  Country: US (occurrence: None)
  Receive Date: 20140909
  Receipt Date: 20140909
  Transmission Date: 20150326
  Serious: Yes (Other)
  Sender: FDA-Public Use
  Company Number: 1363964

PATIENT
  Age: 83 Year
  Sex: Female

DRUGS (2)
  1. CITRACAL [Concomitant]
     Active Substance: CALCIUM CITRATE
  2. LUCENTIS [Suspect]
     Active Substance: RANIBIZUMAB
     Indication: AGE-RELATED MACULAR DEGENERATION
     Dosage: EVERY 4 TO 6 WEEKS, 15 INJECTIONS (0.5 MG, 1 IN 4 WK), INTRAVITREAL
     Dates: start: 20090304, end: 20140403

REACTIONS (2)
  - Endophthalmitis [None]
  - Product quality issue [None]

NARRATIVE: CASE EVENT DATE: 20140306
